FAERS Safety Report 5801779-4 (Version None)
Quarter: 2008Q3

REPORT INFORMATION
  Report Type: 
  Country: None (occurrence: None)
  Receive Date: 20080707
  Receipt Date: 20080626
  Transmission Date: 20090109
  Serious: Yes (Hospitalization)
  Sender: FDA-Public Use
  Company Number: DE-ABBOTT-08P-062-0460071-00

PATIENT
  Sex: Female
  Weight: 65 kg

DRUGS (5)
  1. HUMIRA [Suspect]
     Indication: ANKYLOSING SPONDYLITIS
     Route: 058
     Dates: start: 20050501
  2. ARTHROTEC [Suspect]
     Indication: PAIN
     Dates: start: 20050501
  3. FLUPIRTINE MALEATE [Concomitant]
     Indication: PAIN
     Route: 048
     Dates: start: 20080612
  4. ETORICOXIB [Concomitant]
     Indication: PAIN
     Route: 048
     Dates: start: 20080612
  5. IBPROFENE [Concomitant]
     Indication: DRUG USE FOR UNKNOWN INDICATION
     Route: 048

REACTIONS (3)
  - ARTHRITIS [None]
  - OSTEITIS [None]
  - OSTEOMYELITIS [None]
